FAERS Safety Report 9494569 (Version 2)
Quarter: 2013Q3

REPORT INFORMATION
  Report Type: Spontaneous
  Country: US (occurrence: US)
  Receive Date: 20130903
  Receipt Date: 20130903
  Transmission Date: 20140515
  Serious: Yes (Other)
  Sender: FDA-Public Use
  Company Number: US-PFIZER INC-2013177412

PATIENT
  Age: 64 Year
  Sex: Female

DRUGS (14)
  1. MOTRIN IB [Suspect]
     Indication: PAIN MANAGEMENT
     Dosage: UNK
     Route: 065
  2. GABAPENTIN [Suspect]
     Indication: OSTEOARTHRITIS
     Dosage: UNK
     Route: 065
  3. NAPROXEN SODIUM [Suspect]
     Indication: ARTHRITIS
     Dosage: 220 MG, 2X/DAY
     Dates: start: 2004
  4. NAPROXEN SODIUM [Suspect]
     Indication: ARTHRALGIA
     Dosage: 220 MG, 3X/DAY
  5. NAPROXEN SODIUM [Suspect]
     Dosage: 220 MG, 2X/DAY
  6. NAPROXEN [Suspect]
     Indication: PAIN MANAGEMENT
     Dosage: 200 MG, 2X/DAY
  7. ASPIRINE [Suspect]
     Indication: PAIN
     Dosage: 500 MG, 2X/DAY
     Route: 065
  8. ALEVE [Suspect]
     Indication: ARTHRITIS
     Dosage: 220 MG, 2X/DAY
     Route: 065
     Dates: start: 2004
  9. ALEVE [Suspect]
     Indication: ARTHRALGIA
     Dosage: 220 MG, 3X/DAY
     Route: 065
  10. ALEVE [Suspect]
     Indication: SPINAL PAIN
     Dosage: 500 MG, 2X/DAY
     Route: 065
  11. ALEVE [Suspect]
     Indication: ARTHRALGIA
  12. CELEBREX [Suspect]
     Indication: PRODUCT USED FOR UNKNOWN INDICATION
     Dosage: 1 DF
     Route: 065
  13. VICODIN [Concomitant]
     Indication: PAIN MANAGEMENT
     Dosage: 5/325 MG, 4X/DAY
     Dates: start: 2006
  14. TYLENOL [Concomitant]
     Indication: PAIN MANAGEMENT
     Dosage: OVER 3000 MG A DAY (FREQUENCY UNKNOWN)
     Route: 065

REACTIONS (6)
  - Gastric perforation [Unknown]
  - Gastric ulcer [Unknown]
  - Abdominal pain upper [Unknown]
  - Drug intolerance [Unknown]
  - Abdominal discomfort [Unknown]
  - Epigastric discomfort [Unknown]
